FAERS Safety Report 6245700-6 (Version None)
Quarter: 2009Q2

REPORT INFORMATION
  Report Type: 
  Country: None (occurrence: None)
  Receive Date: 20090625
  Receipt Date: 20090617
  Transmission Date: 20091009
  Serious: Yes (Hospitalization)
  Sender: FDA-Public Use
  Company Number: US-GILEAD-2009-0022310

PATIENT
  Sex: Female

DRUGS (13)
  1. LETAIRIS [Suspect]
     Indication: PULMONARY ARTERIAL HYPERTENSION
     Route: 048
     Dates: start: 20090114
  2. WARFARIN SODIUM [Concomitant]
  3. FUROSEMIDE INTENSOL [Concomitant]
  4. CARVEDILOL [Concomitant]
  5. CRESTOR [Concomitant]
  6. RANEXA [Concomitant]
  7. XOPENEX [Concomitant]
  8. SINGULAIR [Concomitant]
  9. KLOR-CON [Concomitant]
  10. ARICEPT [Concomitant]
  11. NAMENDA [Concomitant]
  12. FOLIC ACID [Concomitant]
  13. LOVAZA [Concomitant]

REACTIONS (2)
  - ABDOMINAL PAIN [None]
  - CHEST PAIN [None]
